FAERS Safety Report 7120668-9 (Version None)
Quarter: 2010Q4

REPORT INFORMATION
  Report Type: 
  Country: None (occurrence: None)
  Receive Date: 20101124
  Receipt Date: 20101110
  Transmission Date: 20110411
  Serious: Yes (Hospitalization, Other)
  Sender: FDA-Public Use
  Company Number: US-BAYER-201025970NA

PATIENT
  Age: 28 Year
  Sex: Female
  Weight: 60 kg

DRUGS (11)
  1. YAZ [Suspect]
     Indication: CONTRACEPTION
     Route: 048
     Dates: start: 20081201, end: 20090601
  2. MOTRIN [Concomitant]
  3. ADVIL [Concomitant]
  4. NAPROSYN [Concomitant]
  5. ALEVE (CAPLET) [Concomitant]
  6. POTASSIUM CHLORIDE [Concomitant]
     Dates: start: 20070101
  7. ZYRTEC [Concomitant]
     Indication: MULTIPLE ALLERGIES
  8. CIPROFLOXACIN [Concomitant]
     Dates: start: 20090101
  9. ALBUTEROL [Concomitant]
     Indication: ASTHMA
  10. CIPRO [Concomitant]
  11. LORTAB [Concomitant]

REACTIONS (7)
  - ABDOMINAL PAIN [None]
  - ABDOMINAL PAIN UPPER [None]
  - ABDOMINAL TENDERNESS [None]
  - CHEST DISCOMFORT [None]
  - CHOLECYSTITIS CHRONIC [None]
  - CHOLELITHIASIS [None]
  - NAUSEA [None]
